FAERS Safety Report 23509473 (Version 3)
Quarter: 2025Q1

REPORT INFORMATION
  Report Type: Spontaneous
  Country: US (occurrence: US)
  Receive Date: 20240210
  Receipt Date: 20250213
  Transmission Date: 20250408
  Serious: No
  Sender: TRAVERE THERAPEUTICS
  Company Number: US-TRAVERE-2024TVT00061

PATIENT
  Age: 48 Year
  Sex: Male

DRUGS (1)
  1. FILSPARI [Suspect]
     Active Substance: SPARSENTAN
     Indication: IgA nephropathy
     Dosage: 200 MG
     Route: 048
     Dates: start: 20231214

REACTIONS (5)
  - Nasopharyngitis [Unknown]
  - Headache [Unknown]
  - Dysphonia [Unknown]
  - Rhinorrhoea [Unknown]
  - Puncture site haemorrhage [Unknown]
